FAERS Safety Report 6706649-5 (Version None)
Quarter: 2010Q2

REPORT INFORMATION
  Report Type: 
  Country: None (occurrence: None)
  Receive Date: 20100503
  Receipt Date: 20100427
  Transmission Date: 20101027
  Serious: Yes (Disabling)
  Sender: FDA-Public Use
  Company Number: EC-ROCHE-699949

PATIENT
  Sex: Female
  Weight: 127 kg

DRUGS (2)
  1. ROACCUTAN [Suspect]
     Route: 048
     Dates: start: 20080201
  2. ROACCUTAN [Suspect]
     Route: 048
     Dates: start: 20090301, end: 20100101

REACTIONS (2)
  - SCAR [None]
  - SKIN NODULE [None]
